FAERS Safety Report 11843634 (Version 3)
Quarter: 2016Q1

REPORT INFORMATION
  Report Type: Spontaneous
  Country: US (occurrence: US)
  Receive Date: 20151217
  Receipt Date: 20160121
  Transmission Date: 20160526
  Serious: No
  Sender: FDA-Public Use
  Company Number: PHEH2015US026227

PATIENT
  Sex: Female
  Weight: 103.4 kg

DRUGS (6)
  1. HYDROCHLOROTHIAZIDE. [Concomitant]
     Active Substance: HYDROCHLOROTHIAZIDE
     Indication: PRODUCT USED FOR UNKNOWN INDICATION
     Dosage: UNK
     Route: 065
  2. SYNTHROID [Concomitant]
     Active Substance: LEVOTHYROXINE SODIUM
     Indication: PRODUCT USED FOR UNKNOWN INDICATION
     Dosage: UNK
     Route: 065
  3. SUTENT [Suspect]
     Active Substance: SUNITINIB MALATE
     Indication: CONSTIPATION
     Dosage: 37.5 MG, 28 DAYS ON/14 DAYS OFF
     Route: 065
     Dates: start: 20150608
  4. METOPROLOL. [Concomitant]
     Active Substance: METOPROLOL
     Indication: PRODUCT USED FOR UNKNOWN INDICATION
     Dosage: UNK
     Route: 065
  5. COMPAZINE [Concomitant]
     Active Substance: PROCHLORPERAZINE MALEATE
     Indication: NAUSEA
     Route: 065
  6. ZOFRAN [Suspect]
     Active Substance: ONDANSETRON HYDROCHLORIDE
     Indication: NAUSEA
     Route: 065

REACTIONS (14)
  - Sensitisation [Unknown]
  - Gingival pain [Unknown]
  - Acne [Unknown]
  - Nausea [Unknown]
  - Drug intolerance [Unknown]
  - Headache [Unknown]
  - Fatigue [Unknown]
  - Ear discomfort [Unknown]
  - Hair colour changes [Unknown]
  - Constipation [Unknown]
  - Radiculopathy [Unknown]
  - Alopecia [Unknown]
  - Dyspepsia [Unknown]
  - Dry skin [Unknown]
